FAERS Safety Report 17467200 (Version 1)
Quarter: 2020Q1

REPORT INFORMATION
  Report Type: Spontaneous
  Country: CH (occurrence: CH)
  Receive Date: 20200227
  Receipt Date: 20200227
  Transmission Date: 20200409
  Serious: Yes (Hospitalization, Other)
  Sender: FDA-Public Use
  Company Number: CH-PFIZER INC-2020084701

PATIENT
  Age: 84 Year
  Sex: Male

DRUGS (11)
  1. PREDNISON STREULI [Concomitant]
     Active Substance: PREDNISONE
     Dosage: 20 MG, QD
     Route: 048
     Dates: start: 202001, end: 20200113
  2. PREDNISON STREULI [Concomitant]
     Active Substance: PREDNISONE
     Dosage: 27.5 MG, QD
     Route: 048
     Dates: start: 20191225, end: 202001
  3. PREDNISON STREULI [Concomitant]
     Active Substance: PREDNISONE
     Dosage: 15 MG, QD
     Route: 048
     Dates: start: 20200114, end: 20200118
  4. PREDNISON STREULI [Concomitant]
     Active Substance: PREDNISONE
     Dosage: 10 MG, QD
     Route: 048
     Dates: start: 20200119, end: 202001
  5. PREDNISON STREULI [Concomitant]
     Active Substance: PREDNISONE
     Dosage: 70 MG, QD
     Route: 048
     Dates: start: 20191221, end: 20191224
  6. CORDARONE [Suspect]
     Active Substance: AMIODARONE HYDROCHLORIDE
     Dosage: 200 MG, QD
     Route: 048
     Dates: start: 20191220, end: 20191223
  7. COLCHICINE. [Interacting]
     Active Substance: COLCHICINE
     Dosage: 1 MG, QD
     Route: 048
     Dates: start: 201912, end: 20200103
  8. ALFUZOSIN MEPHA [Concomitant]
     Dosage: 10 MG, QD
     Route: 048
  9. CORDARONE [Interacting]
     Active Substance: AMIODARONE HYDROCHLORIDE
     Dosage: 200 MG, QD
     Route: 048
     Dates: start: 20191224, end: 20200110
  10. COLCHICINE. [Interacting]
     Active Substance: COLCHICINE
     Dosage: 0.5 MG
     Route: 048
     Dates: start: 20200104, end: 20200107
  11. TORASEMIDE SANDOZ [Concomitant]
     Active Substance: TORSEMIDE
     Dosage: 2.5 MG, QD
     Route: 048

REACTIONS (5)
  - Diarrhoea [Recovered/Resolved]
  - Labelled drug-drug interaction medication error [Unknown]
  - Transaminases increased [Recovered/Resolved]
  - Quadriparesis [Recovered/Resolved]
  - Rhabdomyolysis [Recovering/Resolving]

NARRATIVE: CASE EVENT DATE: 201912
